FAERS Safety Report 10100181 (Version 2)
Quarter: 2014Q2

REPORT INFORMATION
  Report Type: Spontaneous
  Country: US (occurrence: US)
  Receive Date: 20140423
  Receipt Date: 20140423
  Transmission Date: 20141212
  Serious: No
  Sender: FDA-Public Use
  Company Number: US-GILEAD-2013-0075574

PATIENT
  Sex: Female

DRUGS (17)
  1. LETAIRIS [Suspect]
     Indication: PULMONARY ARTERIAL HYPERTENSION
     Dosage: 5 MG, QD
     Dates: start: 20130320
  2. LETAIRIS [Suspect]
     Dosage: 10 UNK, UNK
     Route: 048
     Dates: start: 20130513
  3. REVATIO [Concomitant]
     Dosage: 60 MG, QD
     Route: 048
     Dates: start: 20130104
  4. LASIX                              /00032601/ [Concomitant]
     Dosage: 40 MG, QD
     Route: 048
     Dates: start: 20130423
  5. NASONEX [Concomitant]
     Dosage: 50 ?G, QHS
     Route: 045
     Dates: start: 20130419
  6. SPIRIVA [Concomitant]
     Dosage: 18 ?G, QD
     Route: 055
     Dates: start: 20130307
  7. KLOR-CON [Concomitant]
     Dosage: 10 MEQ, QD
     Route: 048
     Dates: start: 20130107
  8. ALBUTEROL SULFATE [Concomitant]
     Dosage: 2 DF, PRN
     Route: 055
     Dates: start: 20121116
  9. ALBUTEROL SULFATE [Concomitant]
     Dosage: 2.5 MG, TID
     Route: 055
     Dates: start: 20121116
  10. METOPROLOL TARTRATE [Concomitant]
     Dosage: 25 MG, BID
     Route: 048
     Dates: start: 20120828
  11. ADVAIR [Concomitant]
     Dosage: 1 DF, BID
     Dates: start: 20120828
  12. TYLENOL                            /00020001/ [Concomitant]
     Dosage: 650 MG, PRN
     Dates: start: 20120828
  13. OSTEO BI-FLEX [Concomitant]
     Dosage: 1 DF, BID
     Route: 048
     Dates: start: 20120203
  14. ZINC [Concomitant]
     Dosage: 50 MG, QD
     Route: 048
     Dates: start: 20120203
  15. MULTI FOR HER 50 PLUS [Concomitant]
     Dosage: 400 ?G, QD
     Route: 048
     Dates: start: 20110623
  16. CALCIUM 500+D [Concomitant]
     Dosage: 1 DF, QD
     Route: 048
     Dates: start: 20110623
  17. VITAMIN D                          /00107901/ [Concomitant]
     Dosage: 1 DF, QD
     Route: 048

REACTIONS (1)
  - Fatigue [Unknown]
